FAERS Safety Report 9857161 (Version 1)
Quarter: 2014Q1

REPORT INFORMATION
  Report Type: Spontaneous
  Country: AU (occurrence: None)
  Receive Date: 20140128
  Receipt Date: 20140128
  Transmission Date: 20141002
  Serious: Yes (Death)
  Sender: FDA-Public Use
  Company Number: AUR-APL-2014-00479

PATIENT
  Age: 52 Year
  Sex: Male

DRUGS (5)
  1. LAMOTRIGINE (LAMOTRIGINE) [Suspect]
     Indication: PRODUCT USED FOR UNKNOWN INDICATION
  2. QUETIAPINE (QUETIAPINE) [Suspect]
     Indication: PRODUCT USED FOR UNKNOWN INDICATION
  3. DULOXETINE (DULOXETINE) (DULOXETINE) [Suspect]
     Indication: PRODUCT USED FOR UNKNOWN INDICATION
  4. DILTIAZEM HCL (DILTIAZEM HYDROCHLORIDE) [Suspect]
     Indication: PRODUCT USED FOR UNKNOWN INDICATION
  5. ETHANOL [Suspect]
     Indication: PRODUCT USED FOR UNKNOWN INDICATION

REACTIONS (3)
  - Intentional self-injury [None]
  - Toxicity to various agents [None]
  - Arteriosclerosis coronary artery [None]
